FAERS Safety Report 7393791-1 (Version None)
Quarter: 2011Q2

REPORT INFORMATION
  Report Type: 
  Country: None (occurrence: None)
  Receive Date: 20110405
  Receipt Date: 20110328
  Transmission Date: 20111010
  Serious: Yes (Hospitalization, Other)
  Sender: FDA-Public Use
  Company Number: US-ELI_LILLY_AND_COMPANY-US201103000555

PATIENT
  Age: 72 Year
  Sex: Female

DRUGS (14)
  1. CYMBALTA [Suspect]
     Dosage: 180 MG, QD
     Dates: start: 20100622, end: 20100907
  2. BETA BLOCKING AGENTS [Concomitant]
  3. CYMBALTA [Suspect]
     Dosage: 60 MG, QD
     Dates: start: 20100310, end: 20100310
  4. CYMBALTA [Suspect]
     Dosage: 60 MG, TID
     Dates: start: 20100513, end: 20100621
  5. CYMBALTA [Suspect]
     Dosage: 60 MG, QD
     Dates: start: 20110212
  6. CYMBALTA [Suspect]
     Indication: DEPRESSION
     Dosage: 60 MG, QD
     Dates: start: 20100126, end: 20100209
  7. CYMBALTA [Suspect]
     Dosage: 30 MG, QD
     Dates: start: 20100311, end: 20100512
  8. CYMBALTA [Suspect]
     Dosage: 60 MG, BID
     Dates: start: 20110114, end: 20110211
  9. FOCALIN [Concomitant]
  10. CYMBALTA [Suspect]
     Dosage: 60 MG, TID
     Dates: start: 20100210, end: 20100309
  11. CYMBALTA [Suspect]
     Dosage: 30 MG, BID
  12. FLEXERIL [Concomitant]
  13. CYMBALTA [Suspect]
     Dosage: 120 MG, QD
     Dates: start: 20100908, end: 20101025
  14. CYMBALTA [Suspect]
     Dosage: 180 MG, QD
     Dates: start: 20101026, end: 20110113

REACTIONS (3)
  - TACHYCARDIA [None]
  - PNEUMONIA [None]
  - SEROTONIN SYNDROME [None]
